FAERS Safety Report 12039812 (Version 1)
Quarter: 2016Q1

REPORT INFORMATION
  Report Type: Report from Study
  Country: US (occurrence: US)
  Receive Date: 20160208
  Receipt Date: 20160208
  Transmission Date: 20160526
  Serious: No
  Sender: FDA-Public Use
  Company Number: US-AMAG PHARMACEUTICALS, INC.-AMAG201500124

PATIENT

DRUGS (1)
  1. MAKENA [Suspect]
     Active Substance: HYDROXYPROGESTERONE CAPROATE
     Indication: PREMATURE DELIVERY
     Dosage: 250 MG, SINGLE
     Route: 030
     Dates: start: 20150126, end: 20150126

REACTIONS (2)
  - Pruritus [Unknown]
  - Injection site nodule [Unknown]

NARRATIVE: CASE EVENT DATE: 201501
